FAERS Safety Report 7641364-5 (Version None)
Quarter: 2011Q3

REPORT INFORMATION
  Report Type: 
  Country: None (occurrence: None)
  Receive Date: 20110728
  Receipt Date: 20110719
  Transmission Date: 20111222
  Serious: Yes (Other)
  Sender: FDA-Public Use
  Company Number: GB-JNJFOC-20110203575

PATIENT
  Sex: Female

DRUGS (6)
  1. ACETAMINOPHEN AND CODEINE PHOSPHATE [Concomitant]
  2. VENTOLIN HFA [Concomitant]
     Route: 055
  3. REMICADE [Suspect]
     Indication: CROHN'S DISEASE
     Route: 042
  4. LISINOPRIL [Concomitant]
  5. REMICADE [Suspect]
     Indication: INTESTINAL ULCER
     Route: 042
  6. VENLAFAXINE [Concomitant]

REACTIONS (8)
  - ARTHRALGIA [None]
  - HEPATIC FUNCTION ABNORMAL [None]
  - LUPUS-LIKE SYNDROME [None]
  - ECZEMA [None]
  - NECK PAIN [None]
  - PLATELET DISORDER [None]
  - BACK PAIN [None]
  - ALOPECIA [None]
